FAERS Safety Report 12092146 (Version 1)
Quarter: 2016Q1

REPORT INFORMATION
  Report Type: Spontaneous
  Country: FR (occurrence: FR)
  Receive Date: 20160219
  Receipt Date: 20160219
  Transmission Date: 20160526
  Serious: Yes (Other)
  Sender: FDA-Public Use
  Company Number: FR-ASTRAZENECA-2016SE16490

PATIENT
  Age: 76 Year
  Sex: Female

DRUGS (4)
  1. BYDUREON [Suspect]
     Active Substance: EXENATIDE
     Indication: INSULIN-REQUIRING TYPE 2 DIABETES MELLITUS
     Route: 058
     Dates: end: 2016
  2. METFORMIN [Concomitant]
     Active Substance: METFORMIN HYDROCHLORIDE
     Indication: INSULIN-REQUIRING TYPE 2 DIABETES MELLITUS
  3. INSULIN [Concomitant]
     Active Substance: INSULIN NOS
     Indication: INSULIN-REQUIRING TYPE 2 DIABETES MELLITUS
  4. GALVUS [Concomitant]
     Active Substance: VILDAGLIPTIN
     Indication: INSULIN-REQUIRING TYPE 2 DIABETES MELLITUS

REACTIONS (5)
  - Off label use [Recovered/Resolved]
  - Vomiting [Unknown]
  - Injection site nodule [Unknown]
  - Nausea [Unknown]
  - Blood pressure systolic increased [Unknown]

NARRATIVE: CASE EVENT DATE: 2016
